FAERS Safety Report 16313041 (Version 2)
Quarter: 2019Q3

REPORT INFORMATION
  Report Type: Report from Study
  Country: DE (occurrence: DE)
  Receive Date: 20190515
  Receipt Date: 20190916
  Transmission Date: 20191004
  Serious: No
  Sender: FDA-Public Use
  Company Number: DE-ROCHE-2316796

PATIENT
  Age: 53 Year
  Sex: Female
  Weight: 79 kg

DRUGS (14)
  1. FAMPYRA [Concomitant]
     Active Substance: DALFAMPRIDINE
     Dosage: FOR IMPROVEMENT OF WALKING ABILITY
     Route: 048
     Dates: start: 201204
  2. ELIQUIS [Concomitant]
     Active Substance: APIXABAN
     Indication: THROMBOSIS PROPHYLAXIS
     Route: 048
     Dates: start: 2015
  3. URBASON [METHYLPREDNISOLONE] [Concomitant]
     Active Substance: METHYLPREDNISOLONE
     Route: 065
     Dates: start: 20111101, end: 20180916
  4. HISTAKUT [Concomitant]
     Route: 042
  5. HISTAKUT [Concomitant]
     Dosage: DURING FIRST CYCLE
     Route: 042
     Dates: start: 20181010
  6. EMSELEX [DARIFENACIN] [Concomitant]
     Indication: BLADDER DISORDER
     Route: 048
     Dates: start: 201204
  7. PREDNISOLUT [PREDNISOLONE HEMISUCCINATE] [Concomitant]
     Route: 042
  8. PANTOZOL [Concomitant]
     Active Substance: PANTOPRAZOLE SODIUM
     Route: 042
  9. OCRELIZUMAB. [Suspect]
     Active Substance: OCRELIZUMAB
     Indication: PRIMARY PROGRESSIVE MULTIPLE SCLEROSIS
     Route: 042
     Dates: start: 20181010, end: 20181024
  10. PARACETAMOL [Concomitant]
     Active Substance: ACETAMINOPHEN
     Dosage: DURING FIRST CYCLE
     Route: 048
     Dates: start: 20181010
  11. PREDNISOLUT [PREDNISOLONE HEMISUCCINATE] [Concomitant]
     Dosage: DURING FIRST CYCLE
     Route: 042
     Dates: start: 20181010
  12. PARACETAMOL [Concomitant]
     Active Substance: ACETAMINOPHEN
     Route: 048
  13. PANTOZOL [Concomitant]
     Active Substance: PANTOPRAZOLE SODIUM
     Dosage: DURING FIRST CYCLE
     Route: 042
     Dates: start: 20181010
  14. BACLOFEN. [Concomitant]
     Active Substance: BACLOFEN
     Indication: MUSCLE SPASTICITY
     Route: 048
     Dates: start: 201102

REACTIONS (2)
  - Cystitis [Recovered/Resolved]
  - Conjunctivitis [Recovered/Resolved]

NARRATIVE: CASE EVENT DATE: 20181102
